FAERS Safety Report 4335606-1 (Version None)
Quarter: 2004Q2

REPORT INFORMATION
  Report Type: 
  Country: None (occurrence: None)
  Receive Date: 20040406
  Receipt Date: 20040329
  Transmission Date: 20050107
  Serious: Yes (Hospitalization)
  Sender: FDA-Public Use
  Company Number: US065793

PATIENT
  Age: 55 Year
  Sex: Female

DRUGS (12)
  1. ARANESP [Suspect]
     Indication: RENAL FAILURE CHRONIC
     Dosage: 100 MCG, 1 IN 2 WEEKS, SC
     Route: 058
     Dates: start: 20031001
  2. ASPIRIN [Suspect]
     Dosage: 325 MG, 1 IN 1 DAYS
  3. QUININE [Suspect]
     Dosage: 324 MG, 3 IN 1 DAYS
  4. CAPTOPRIL [Concomitant]
  5. DIGOXIN [Concomitant]
  6. ATORVASTATIN CALCIUM [Concomitant]
  7. CARVEDILOL [Concomitant]
  8. FENOFIBRATE [Concomitant]
  9. PIOGLITAZONE HCL [Concomitant]
  10. METOLAZONE [Concomitant]
  11. TORSEMIDE [Concomitant]
  12. INSULIN [Concomitant]

REACTIONS (6)
  - CARDIAC FAILURE CONGESTIVE [None]
  - COOMBS TEST POSITIVE [None]
  - HAEMOGLOBIN DECREASED [None]
  - HAEMOLYSIS [None]
  - THERAPEUTIC RESPONSE DECREASED [None]
  - VIRAL INFECTION [None]
